FAERS Safety Report 8722265 (Version 2)
Quarter: 2012Q4

REPORT INFORMATION
  Report Type: 
  Country: JP (occurrence: JP)
  Receive Date: 20120814
  Receipt Date: 20121026
  Transmission Date: 20130627
  Serious: Yes (Other)
  Sender: FDA-Public Use
  Company Number: JP-009507513-2012SP032677

PATIENT
  Age: 63 Year
  Sex: Male
  Weight: 59 kg

DRUGS (17)
  1. PEGINTRON [Suspect]
     Indication: HEPATITIS C
     Dosage: 1.5 Microgram per kilogram, qw
     Route: 058
     Dates: start: 20120403, end: 20120907
  2. REBETOL [Suspect]
     Indication: HEPATITIS C
     Dosage: 600 mg, QD
     Route: 048
     Dates: start: 20120403, end: 20120426
  3. REBETOL [Suspect]
     Dosage: 400 mg, QD
     Route: 048
     Dates: start: 20120427
  4. REBETOL [Suspect]
     Dosage: 600 mg, qd
     Route: 048
     Dates: end: 20120802
  5. REBETOL [Suspect]
     Dosage: 800 mg, qd
     Route: 048
     Dates: start: 20120803, end: 20120907
  6. TELAVIC [Suspect]
     Indication: HEPATITIS C
     Dosage: 1500 mg, qd
     Route: 048
     Dates: start: 20120403
  7. ANTIVIRAL (UNSPECIFIED) [Suspect]
     Indication: HEPATITIS C
     Dosage: 1500 mg, QD
     Route: 048
     Dates: start: 20120403
  8. AMLODIPINE [Concomitant]
     Indication: HYPERTENSION
     Dosage: 10 mg, qd
     Route: 048
  9. PARIET [Concomitant]
     Indication: GASTRIC ULCER
     Dosage: 10 mg, qd
     Route: 048
  10. SEFTAC [Concomitant]
     Indication: GASTRIC ULCER
     Dosage: 200 mg, QD
     Route: 048
  11. SEFTAC [Concomitant]
     Route: 048
  12. CLARITIN REDITABS [Concomitant]
     Indication: PROPHYLAXIS
     Dosage: 10 mg, QD
     Route: 048
  13. EPADEL S [Concomitant]
     Indication: HYPERLIPIDAEMIA
     Dosage: 1800 mg, qd
     Route: 048
  14. SODIUM FERROUS CITRATE [Concomitant]
     Indication: IRON DEFICIENCY ANAEMIA
     Dosage: 100 mg, qd
     Route: 048
  15. FEROTYM [Concomitant]
     Indication: IRON DEFICIENCY ANAEMIA
     Dosage: 100 mg, Once
     Route: 048
  16. TAMSULOSIN HYDROCHLORIDE [Concomitant]
     Indication: BENIGN PROSTATIC HYPERPLASIA
     Dosage: 0.2 mg, qd
     Route: 048
  17. MAGLAX (MAGNESIUM OXIDE) [Concomitant]
     Indication: CONSTIPATION
     Dosage: 750 mg, qd
     Route: 048

REACTIONS (1)
  - Anaemia [Not Recovered/Not Resolved]
